FAERS Safety Report 4357469-0 (Version None)
Quarter: 2004Q2

REPORT INFORMATION
  Report Type: 
  Country: None (occurrence: None)
  Receive Date: 20040506
  Receipt Date: 20040420
  Transmission Date: 20050107
  Serious: Yes (Other)
  Sender: FDA-Public Use
  Company Number: 2004-DE-02447GL

PATIENT

DRUGS (2)
  1. TELMISARTAN (TELMISARTAN) [Suspect]
     Dosage: PO
     Route: 048
  2. SIMVASTATIN [Suspect]
     Dosage: VARIABLE DOSE (SEE TEXT) PO
     Route: 048
     Dates: start: 20010101

REACTIONS (1)
  - TRANSAMINASES INCREASED [None]
